FAERS Safety Report 18953677 (Version 2)
Quarter: 2021Q2

REPORT INFORMATION
  Report Type: Spontaneous
  Country: US (occurrence: US)
  Receive Date: 20210301
  Receipt Date: 20210413
  Transmission Date: 20210717
  Serious: No
  Sender: FDA-Public Use
  Company Number: US-ASTRAZENECA-2021A039237

PATIENT
  Sex: Male
  Weight: 65.8 kg

DRUGS (2)
  1. BREZTRI AEROSPHERE [Suspect]
     Active Substance: BUDESONIDE\FORMOTEROL\GLYCOPYRRONIUM
     Indication: DYSPNOEA
     Dosage: 60?9?4.8 MCG 2 PUFFS TWO TIMES A DAY
     Route: 055
  2. BREZTRI AEROSPHERE [Suspect]
     Active Substance: BUDESONIDE\FORMOTEROL\GLYCOPYRRONIUM
     Indication: ASTHMA
     Dosage: 60?9?4.8 MCG 2 PUFFS TWO TIMES A DAY
     Route: 055

REACTIONS (6)
  - Device issue [Unknown]
  - Fatigue [Unknown]
  - Product taste abnormal [Unknown]
  - Confusional state [Unknown]
  - Product dose omission issue [Unknown]
  - Intentional device misuse [Unknown]
